FAERS Safety Report 8460499-0 (Version None)
Quarter: 2012Q2

REPORT INFORMATION
  Report Type: 
  Country: None (occurrence: None)
  Receive Date: 20120622
  Receipt Date: 20120620
  Transmission Date: 20120825
  Serious: No
  Sender: FDA-Public Use
  Company Number: US-PFIZER INC-2012149201

PATIENT
  Sex: Male
  Weight: 58.957 kg

DRUGS (4)
  1. JANUMET [Concomitant]
     Indication: DIABETES MELLITUS
     Dosage: UNK
  2. LYRICA [Suspect]
     Indication: PAIN
     Dosage: 75 MG, 1X/DAY
     Route: 048
     Dates: start: 20120612, end: 20120613
  3. FOLIC ACID [Concomitant]
     Indication: HYPERTENSION
     Dosage: UNK
  4. VERAPAMIL [Concomitant]
     Indication: HYPERTENSION
     Dosage: UNK

REACTIONS (1)
  - INSOMNIA [None]
